FAERS Safety Report 19364237 (Version 2)
Quarter: 2021Q2

REPORT INFORMATION
  Report Type: Report from Study
  Country: US (occurrence: US)
  Receive Date: 20210603
  Receipt Date: 20210611
  Transmission Date: 20210717
  Serious: Yes (Hospitalization, Other)
  Sender: FDA-Public Use
  Company Number: US-TAIHO ONCOLOGY  INC-EU-2021-01684

PATIENT
  Age: 64 Year
  Sex: Female

DRUGS (19)
  1. LIDOCAINE MUCOSAL [Concomitant]
     Dosage: SOLUTION; 5ML TO AFFECTED MUCOSAL AREA
  2. ESCITALOPRAM [Concomitant]
     Active Substance: ESCITALOPRAM OXALATE
     Route: 048
  3. ESTRADIOL?NORETHINDRONE ACETATE [Concomitant]
     Dosage: 1MG?0.5MG
     Route: 048
  4. GABAPENTIN. [Concomitant]
     Active Substance: GABAPENTIN
     Route: 048
  5. MORPHINE [Concomitant]
     Active Substance: MORPHINE
     Dosage: EXTENDED RELEASE
     Route: 048
  6. UREA. [Concomitant]
     Active Substance: UREA
     Dosage: 1 APPLICATION
     Route: 061
  7. PROCHLORPERAZINE. [Concomitant]
     Active Substance: PROCHLORPERAZINE
     Indication: NAUSEA
     Dosage: AS NEEDED
     Route: 048
  8. OXYCODONE [Concomitant]
     Active Substance: OXYCODONE
     Indication: PAIN
     Dosage: 4 TO 6 HOURS
     Route: 048
  9. REGORAFENIB. [Concomitant]
     Active Substance: REGORAFENIB
     Dosage: 160 MG ORALLY EVERY DAY. ON DAYS 1?21 OF EACH 28 DAY CYCLE.
     Route: 048
  10. ATORVASTATIN [Concomitant]
     Active Substance: ATORVASTATIN
     Route: 048
  11. DEXAMETHASONE. [Concomitant]
     Active Substance: DEXAMETHASONE
     Route: 048
  12. ONDANSETRON [Concomitant]
     Active Substance: ONDANSETRON
     Route: 048
  13. MORPHINE [Concomitant]
     Active Substance: MORPHINE
     Route: 048
  14. LISINOPRIL. [Concomitant]
     Active Substance: LISINOPRIL
     Route: 048
  15. MAGNESIUM OXIDE. [Concomitant]
     Active Substance: MAGNESIUM OXIDE
     Route: 048
  16. LONSURF [Suspect]
     Active Substance: TIPIRACIL HYDROCHLORIDE\TRIFLURIDINE
     Indication: COLORECTAL CANCER
     Dosage: CYCLE UNKNOWN.
     Route: 048
  17. TAMSULOSIN [Concomitant]
     Active Substance: TAMSULOSIN
     Route: 048
  18. REGORAFENIB. [Concomitant]
     Active Substance: REGORAFENIB
     Dosage: 2 TABS (80MG) DAYS 1?7; 3 TABS (120MG) DAYS 8?14, 4 TABS (160MG) DAYS 15?21. CYCLE 1
     Route: 048
  19. METFORMIN [Concomitant]
     Active Substance: METFORMIN HYDROCHLORIDE
     Dosage: CAPLET
     Route: 048

REACTIONS (5)
  - Hypovolaemia [Unknown]
  - Dehydration [Recovered/Resolved]
  - Hypotension [Recovered/Resolved]
  - Klebsiella infection [Recovered/Resolved]
  - Enterocutaneous fistula [Unknown]

NARRATIVE: CASE EVENT DATE: 20210513
